FAERS Safety Report 4574693-2 (Version None)
Quarter: 2005Q1

REPORT INFORMATION
  Report Type: 
  Country: None (occurrence: None)
  Receive Date: 20050204
  Receipt Date: 20050131
  Transmission Date: 20050727
  Serious: Yes (Death, Other)
  Sender: FDA-Public Use
  Company Number: A-US2004-05743

PATIENT
  Age: 58 Year
  Sex: Male

DRUGS (8)
  1. TRACLEER [Suspect]
     Indication: PULMONARY HYPERTENSION
     Dosage: 125 MG, BID; ORAL (SEE IMAGE)
     Route: 048
     Dates: start: 20020501, end: 20020601
  2. TRACLEER [Suspect]
     Indication: PULMONARY HYPERTENSION
     Dosage: 125 MG, BID; ORAL (SEE IMAGE)
     Route: 048
     Dates: start: 20020601, end: 20040301
  3. URSODIOL (URSODEOXYCHOLIC ACID) [Concomitant]
  4. FUROSEMIDE [Concomitant]
  5. LISINOPRIL [Concomitant]
  6. WYGESIC (DEXTROPROPOXYPHENE HYDROCHLORIDE) [Concomitant]
  7. HYOSCYAMINE [Concomitant]
  8. NEXIUM [Concomitant]

REACTIONS (12)
  - ALANINE AMINOTRANSFERASE INCREASED [None]
  - ASPARTATE AMINOTRANSFERASE INCREASED [None]
  - BILIARY CIRRHOSIS [None]
  - BLOOD ALKALINE PHOSPHATASE INCREASED [None]
  - BLOOD BILIRUBIN INCREASED [None]
  - DECREASED APPETITE [None]
  - DEPRESSION [None]
  - DYSPNOEA [None]
  - FATIGUE [None]
  - LIVER FUNCTION TEST ABNORMAL [None]
  - SPLENOMEGALY [None]
  - VOMITING [None]
